FAERS Safety Report 6012638-9 (Version None)
Quarter: 2008Q4

REPORT INFORMATION
  Report Type: 
  Country: None (occurrence: None)
  Receive Date: 20081218
  Receipt Date: 20081210
  Transmission Date: 20090506
  Serious: Yes (Hospitalization)
  Sender: FDA-Public Use
  Company Number: US-ABBOTT-08P-163-0492118-00

PATIENT
  Sex: Female

DRUGS (2)
  1. HUMIRA [Suspect]
     Indication: CROHN'S DISEASE
     Route: 058
     Dates: start: 20050101, end: 20070101
  2. HUMIRA [Suspect]
     Route: 058
     Dates: start: 20070101

REACTIONS (7)
  - CARDIAC VALVE RUPTURE [None]
  - CROHN'S DISEASE [None]
  - DYSPNOEA [None]
  - ENDOCARDITIS [None]
  - JOINT SWELLING [None]
  - LISTERIA SEPSIS [None]
  - VENTRICULAR TACHYCARDIA [None]
